FAERS Safety Report 10334131 (Version 1)
Quarter: 2014Q3

REPORT INFORMATION
  Report Type: Spontaneous
  Country: CA (occurrence: None)
  Receive Date: 20140721
  Receipt Date: 20140721
  Transmission Date: 20150326
  Serious: Yes (Disabling)
  Sender: FDA-Public Use
  Company Number: 2013-2118-SPO

PATIENT
  Age: 53 Year
  Sex: Female
  Weight: 83.9 kg

DRUGS (9)
  1. CYANOCOBALAMIN (CYANOCOBALAMIN) [Concomitant]
  2. CELBREX (CELECOXIB) [Concomitant]
  3. PROMETRIUM [Suspect]
     Active Substance: PROGESTERONE
     Indication: MENOPAUSE
     Dosage: 1 IN 1 D
     Route: 048
     Dates: start: 20121015
  4. LYRICA [Concomitant]
     Active Substance: PREGABALIN
  5. RALIVIA (TRAMADOL HYDROCHLORIDE) [Concomitant]
  6. NEXIUM [Concomitant]
     Active Substance: ESOMEPRAZOLE MAGNESIUM
  7. SYNTHROID [Concomitant]
     Active Substance: LEVOTHYROXINE SODIUM
  8. ESTROGEL [Suspect]
     Active Substance: ESTRADIOL
     Indication: MENOPAUSE
     Dosage: 1 IN 1 D
     Route: 061
     Dates: start: 20121015
  9. TABS (COLECALCIFEROL) [Concomitant]

REACTIONS (3)
  - Pain [None]
  - Discomfort [None]
  - Burning sensation [None]
